FAERS Safety Report 9132123 (Version 1)
Quarter: 2013Q1

REPORT INFORMATION
  Report Type: Spontaneous
  Country: US (occurrence: US)
  Receive Date: 20130208
  Receipt Date: 20130208
  Transmission Date: 20140127
  Serious: No
  Sender: FDA-Public Use
  Company Number: US-BAYER-2013-014273

PATIENT
  Age: 47 Year
  Sex: Female
  Weight: 58.96 kg

DRUGS (7)
  1. BETASERON [Suspect]
     Dosage: 0.25 MG, QOD
     Route: 058
  2. RELPAX [Concomitant]
     Dosage: 20 MG, UNK
  3. ADVIL [IBUPROFEN] [Concomitant]
     Dosage: 200 MG, UNK
  4. MAGNESIUM [MAGNESIUM] [Concomitant]
     Dosage: 250 MG, UNK
  5. OSCAL 500-D [CALCIUM,COLECALCIFEROL] [Concomitant]
  6. VITAMIN D NOS [Concomitant]
     Dosage: 1000 U, UNK
  7. MULTIVITAMIN [Concomitant]

REACTIONS (2)
  - Injection site erythema [Unknown]
  - Injection site pruritus [Unknown]
